FAERS Safety Report 16185483 (Version 1)
Quarter: 2019Q2

REPORT INFORMATION
  Report Type: Spontaneous
  Country: FR (occurrence: FR)
  Receive Date: 20190411
  Receipt Date: 20190411
  Transmission Date: 20190711
  Serious: Yes (Life-Threatening, Hospitalization)
  Sender: FDA-Public Use
  Company Number: FR-PFIZER INC-2019142178

PATIENT
  Age: 63 Year
  Sex: Male

DRUGS (3)
  1. NEURONTIN [Suspect]
     Active Substance: GABAPENTIN
     Dosage: 1800 MG (600 MGX3), 1X/DAY
  2. OXYCODONE HYDROCHLORIDE. [Concomitant]
     Active Substance: OXYCODONE HYDROCHLORIDE
     Dosage: UNK
     Route: 042
     Dates: end: 20181104
  3. METHADONE [Suspect]
     Active Substance: METHADONE HYDROCHLORIDE
     Dates: start: 20181105

REACTIONS (1)
  - Overdose [Recovered/Resolved with Sequelae]

NARRATIVE: CASE EVENT DATE: 201812
